FAERS Safety Report 6943568-3 (Version None)
Quarter: 2010Q3

REPORT INFORMATION
  Report Type: 
  Country: None (occurrence: None)
  Receive Date: 20100826
  Receipt Date: 20100812
  Transmission Date: 20110219
  Serious: No
  Sender: FDA-Public Use
  Company Number: US-B.I. PHARMACEUTICALS,INC./RIDGEFIELD-2010-BP-09263BP

PATIENT
  Sex: Female

DRUGS (1)
  1. TWYNSTA [Suspect]

REACTIONS (2)
  - ABNORMAL DREAMS [None]
  - NIGHT SWEATS [None]
